FAERS Safety Report 24309691 (Version 1)
Quarter: 2024Q3

REPORT INFORMATION
  Report Type: Report from Study
  Country: IT (occurrence: IT)
  Receive Date: 20240912
  Receipt Date: 20240912
  Transmission Date: 20241017
  Serious: Yes (Life-Threatening, Hospitalization, Other)
  Sender: RANBAXY
  Company Number: IT-SUN PHARMACEUTICAL INDUSTRIES LTD-2024R1-467150

PATIENT

DRUGS (2)
  1. GEMCITABINE [Suspect]
     Active Substance: GEMCITABINE
     Indication: Chemotherapy
     Dosage: 1000 MILLIGRAM/SQ. METER, EVERY 14-28 DAYS FOR 1-6 CYCLES
     Route: 065
  2. OXALIPLATIN [Suspect]
     Active Substance: OXALIPLATIN
     Indication: Chemotherapy
     Dosage: 100 MILLIGRAM/SQ. METER, EVERY 14-28 DAYS FOR 1-6 CYCLES
     Route: 065

REACTIONS (3)
  - Hyponatraemia [Unknown]
  - Platelet toxicity [Unknown]
  - Hydrocephalus [Unknown]
